FAERS Safety Report 7317566 (Version 5)
Quarter: 2012Q4

REPORT INFORMATION
  Report Type: 
  Country: US (occurrence: US)
  Receive Date: 20100312
  Receipt Date: 20121206
  Transmission Date: 20130627
  Serious: Yes (Hospitalization, Other)
  Sender: FDA-Public Use
  Company Number: US-BAYER-201016014NA

PATIENT
  Age: 31 Year
  Sex: Female
  Weight: 49.89 kg

DRUGS (5)
  1. YAZ [Suspect]
  2. YASMIN [Suspect]
     Dosage: UNK UNK, QD
     Route: 048
     Dates: start: 200212, end: 200303
  3. VITAMIN C [ASCORBIC ACID] [Concomitant]
  4. ONE-A-DAY [MINERALS NOS,VITAMINS NOS] [Concomitant]
  5. FLORINEF [Concomitant]
     Indication: HYPOTENSION

REACTIONS (2)
  - Cerebrovascular accident [Unknown]
  - Ischaemic cerebral infarction [None]
